FAERS Safety Report 8857534 (Version 1)
Quarter: 2012Q4

REPORT INFORMATION
  Report Type: 
  Country: FR (occurrence: FR)
  Receive Date: 20121024
  Receipt Date: 20121024
  Transmission Date: 20130627
  Serious: Yes (Other)
  Sender: FDA-Public Use
  Company Number: FR-GLAXOSMITHKLINE-B0812329A

PATIENT
  Age: 50 Year
  Sex: Male

DRUGS (4)
  1. LEVOTHYROXINE [Suspect]
     Indication: BASEDOW^S DISEASE
     Route: 065
  2. FOSAMPRENAVIR [Suspect]
     Indication: HIV INFECTION
     Route: 065
     Dates: start: 200603
  3. RITONAVIR [Suspect]
     Indication: HIV INFECTION
     Route: 065
     Dates: start: 200603
  4. NEVIRAPINE [Concomitant]
     Indication: HIV INFECTION
     Route: 065
     Dates: start: 200603

REACTIONS (3)
  - Hypothyroidism [Recovered/Resolved]
  - Drug ineffective [Unknown]
  - Drug interaction [Unknown]
